FAERS Safety Report 9331409 (Version 1)
Quarter: 2013Q2

REPORT INFORMATION
  Report Type: Report from Study
  Country: US (occurrence: US)
  Receive Date: 20130605
  Receipt Date: 20130605
  Transmission Date: 20140414
  Serious: Yes (Death)
  Sender: FDA-Public Use
  Company Number: US-COVIDIEN/TYCO HEALTHCARE/MALLINCKRODT-T201302500

PATIENT
  Sex: 0

DRUGS (1)
  1. SODIUM IODIDE (I 131) [Suspect]
     Indication: THYROID CANCER
     Dosage: UNK
     Route: 065

REACTIONS (1)
  - Death [Fatal]
